FAERS Safety Report 5751703-8 (Version None)
Quarter: 2008Q2

REPORT INFORMATION
  Report Type: 
  Country: None (occurrence: None)
  Receive Date: 20080527
  Receipt Date: 20080512
  Transmission Date: 20081010
  Serious: No
  Sender: FDA-Public Use
  Company Number: 08H-163-0314292-00

PATIENT
  Age: 74 Year
  Sex: Male

DRUGS (4)
  1. FENTANYL CITRATE [Suspect]
     Indication: SEDATION
     Dosage: 25 MCG, ONCE, INTRAVENOUS
     Route: 042
     Dates: start: 20080107, end: 20080107
  2. BENADRYL [Concomitant]
  3. VERSED [Concomitant]
  4. SODIUM CHLORIDE [Concomitant]

REACTIONS (8)
  - DYSKINESIA [None]
  - GRIP STRENGTH DECREASED [None]
  - HYPERTENSION [None]
  - HYPERTENSIVE CRISIS [None]
  - HYPERTENSIVE ENCEPHALOPATHY [None]
  - OXYGEN SATURATION DECREASED [None]
  - RESPIRATORY DISTRESS [None]
  - TRANSIENT ISCHAEMIC ATTACK [None]
